FAERS Safety Report 7641143-9 (Version None)
Quarter: 2011Q3

REPORT INFORMATION
  Report Type: 
  Country: None (occurrence: None)
  Receive Date: 20110728
  Receipt Date: 20110714
  Transmission Date: 20111222
  Serious: Yes (Other)
  Sender: FDA-Public Use
  Company Number: PHHY2011US63323

PATIENT
  Age: 56 Year
  Sex: Female

DRUGS (5)
  1. CYMBALTA [Concomitant]
  2. POTASSIUM [Concomitant]
     Dosage: 40 MG, UNK
  3. DIOVAN HCT [Suspect]
     Dosage: 2 DF, (160/12.5 MG), DAILY
     Route: 048
  4. NORVASC [Concomitant]
     Dosage: 25 MG, UNK
  5. ATENOLOL [Concomitant]
     Dosage: 60 MG, UNK

REACTIONS (3)
  - CEREBROVASCULAR ACCIDENT [None]
  - MALAISE [None]
  - BLOOD PRESSURE INCREASED [None]
